FAERS Safety Report 14861038 (Version 2)
Quarter: 2018Q2

REPORT INFORMATION
  Report Type: Spontaneous
  Country: IN (occurrence: IN)
  Receive Date: 20180508
  Receipt Date: 20180618
  Transmission Date: 20180711
  Serious: Yes (Death)
  Sender: FDA-Public Use
  Company Number: IN-ENDO PHARMACEUTICALS INC-2018-036141

PATIENT
  Age: 23 Year
  Sex: Female

DRUGS (1)
  1. FOLIC ACID TABLETS [Suspect]
     Active Substance: FOLIC ACID
     Indication: PRODUCT USED FOR UNKNOWN INDICATION
     Dosage: 30-40 TABLETS
     Route: 065

REACTIONS (6)
  - Completed suicide [Fatal]
  - Maternal exposure during pregnancy [Fatal]
  - Hepatic necrosis [Fatal]
  - Toxicity to various agents [Fatal]
  - Ileal perforation [Fatal]
  - Renal tubular necrosis [Fatal]
